FAERS Safety Report 25388946 (Version 2)
Quarter: 2025Q3

REPORT INFORMATION
  Report Type: Spontaneous
  Country: JP (occurrence: JP)
  Receive Date: 20250603
  Receipt Date: 20250829
  Transmission Date: 20251021
  Serious: Yes (Death, Other)
  Sender: UNITED THERAPEUTICS
  Company Number: JP-UNITED THERAPEUTICS-UNT-2024-018353

PATIENT
  Age: 59 Year
  Sex: Female

DRUGS (15)
  1. TREPROSTINIL [Suspect]
     Active Substance: TREPROSTINIL
     Indication: Pulmonary arterial hypertension
     Dosage: 18 ?G, QID
     Dates: start: 20240513, end: 2024
  2. TREPROSTINIL [Suspect]
     Active Substance: TREPROSTINIL
     Indication: Idiopathic interstitial pneumonia
     Dosage: 24 ?G, QID
     Dates: start: 2024, end: 2024
  3. TREPROSTINIL [Suspect]
     Active Substance: TREPROSTINIL
     Dosage: 24 ?G, QID (RESTARTED)
     Dates: start: 2024, end: 2024
  4. TREPROSTINIL [Suspect]
     Active Substance: TREPROSTINIL
     Dosage: 36 ?G, QID
     Dates: start: 2024, end: 2024
  5. TREPROSTINIL [Suspect]
     Active Substance: TREPROSTINIL
     Dosage: 36 ?G, QID
     Dates: start: 2024
  6. TREPROSTINIL [Suspect]
     Active Substance: TREPROSTINIL
     Dosage: 36 ?G, TID
  7. MOUNJARO [Concomitant]
     Active Substance: TIRZEPATIDE
     Indication: Product used for unknown indication
  8. IMEGLIMIN HYDROCHLORIDE [Concomitant]
     Active Substance: IMEGLIMIN HYDROCHLORIDE
     Indication: Product used for unknown indication
  9. METOCLOPRAMIDE [Concomitant]
     Active Substance: METOCLOPRAMIDE
     Indication: Product used for unknown indication
  10. Torasemide ko [Concomitant]
     Indication: Product used for unknown indication
     Dosage: 4 MG, QD
     Dates: end: 20241009
  11. Torasemide ko [Concomitant]
     Dosage: 8 MG, QD
     Dates: start: 20241010
  12. CITRIC ACID [Concomitant]
     Active Substance: CITRIC ACID MONOHYDRATE
     Indication: Product used for unknown indication
  13. PILSICAINIDE HYDROCHLORIDE [Concomitant]
     Active Substance: PILSICAINIDE HYDROCHLORIDE
     Indication: Product used for unknown indication
  14. TELMISARTAN [Concomitant]
     Active Substance: TELMISARTAN
     Indication: Product used for unknown indication
  15. PIRFENIDONE [Concomitant]
     Active Substance: PIRFENIDONE
     Indication: Product used for unknown indication

REACTIONS (8)
  - Interstitial lung disease [Fatal]
  - Cough [Not Recovered/Not Resolved]
  - Fluid retention [Not Recovered/Not Resolved]
  - Influenza [Unknown]
  - Physical deconditioning [Unknown]
  - Drug ineffective [Unknown]
  - Idiopathic interstitial pneumonia [Unknown]
  - Off label use [Unknown]

NARRATIVE: CASE EVENT DATE: 20240611
